FAERS Safety Report 7769675-3 (Version None)
Quarter: 2011Q3

REPORT INFORMATION
  Report Type: 
  Country: None (occurrence: None)
  Receive Date: 20110922
  Receipt Date: 20100412
  Transmission Date: 20111222
  Serious: No
  Sender: FDA-Public Use
  Company Number: US-ASTRAZENECA-2010SE47785

PATIENT
  Sex: Male

DRUGS (5)
  1. PAXIL [Concomitant]
     Dosage: 20 MG
     Route: 048
     Dates: start: 20050617
  2. RISPERDAL [Concomitant]
     Indication: PSYCHOTIC DISORDER
     Dates: start: 20040101
  3. SEROQUEL [Suspect]
     Dosage: 100-200 MG
     Route: 048
     Dates: start: 20050617
  4. LORAZEPAM [Concomitant]
     Dosage: 1 MG BID
     Route: 048
     Dates: start: 20050617
  5. VISTARIL [Concomitant]
     Indication: SLEEP DISORDER
     Dates: start: 20040928

REACTIONS (5)
  - HISTRIONIC PERSONALITY DISORDER [None]
  - HALLUCINATION, AUDITORY [None]
  - WEIGHT INCREASED [None]
  - PANIC DISORDER WITH AGORAPHOBIA [None]
  - AGGRESSION [None]
